FAERS Safety Report 4613277-4 (Version None)
Quarter: 2005Q1

REPORT INFORMATION
  Report Type: 
  Country: None (occurrence: None)
  Receive Date: 20050315
  Receipt Date: 20030318
  Transmission Date: 20050727
  Serious: No
  Sender: FDA-Public Use
  Company Number: 4999

PATIENT
  Age: 24 Year
  Sex: Male

DRUGS (2)
  1. MIDAZOLAM [Suspect]
     Dosage: 10 MG ONCE IV
     Route: 042
     Dates: start: 20010515
  2. HALOPERIDOL [Suspect]
     Dosage: 15 MG ONCE IV
     Route: 042
     Dates: start: 20010515

REACTIONS (1)
  - HYPERTONIA [None]
